FAERS Safety Report 8295039-2 (Version None)
Quarter: 2012Q2

REPORT INFORMATION
  Report Type: 
  Country: None (occurrence: None)
  Receive Date: 20120418
  Receipt Date: 20120412
  Transmission Date: 20120825
  Serious: Yes (Death)
  Sender: FDA-Public Use
  Company Number: JP-ELI_LILLY_AND_COMPANY-JP201204004022

PATIENT
  Age: 35 Year
  Sex: Female

DRUGS (4)
  1. PANVITAN [Concomitant]
     Dosage: 1 G, UNK
     Route: 048
     Dates: start: 20091002, end: 20091113
  2. VITAMIN B12 [Concomitant]
     Dosage: 1 MG, UNK
     Route: 030
     Dates: start: 20091002
  3. PRIMPERAN TAB [Concomitant]
     Indication: LUNG ADENOCARCINOMA STAGE IV
     Dosage: UNK
     Route: 048
     Dates: start: 20091016, end: 20091019
  4. ALIMTA [Suspect]
     Indication: LUNG ADENOCARCINOMA STAGE IV
     Dosage: 500 MG/M2, UNK
     Route: 042
     Dates: start: 20091014, end: 20091106

REACTIONS (1)
  - PULMONARY EMBOLISM [None]
